FAERS Safety Report 18834425 (Version 1)
Quarter: 2021Q1

REPORT INFORMATION
  Report Type: Spontaneous
  Country: CO (occurrence: CO)
  Receive Date: 20210203
  Receipt Date: 20210203
  Transmission Date: 20210419
  Serious: Yes (Death)
  Sender: FDA-Public Use
  Company Number: CO-ALVOGEN-2021-ALVOGEN-116397

PATIENT
  Age: 34 Year
  Sex: Female

DRUGS (3)
  1. PRIMAQUINE [Suspect]
     Active Substance: PRIMAQUINE PHOSPHATE
     Indication: MALARIA PROPHYLAXIS
  2. ARTESUNATE [Suspect]
     Active Substance: ARTESUNATE
     Indication: MALARIA PROPHYLAXIS
     Dosage: 2.4 MG/KG
  3. CHLOROQUINE. [Suspect]
     Active Substance: CHLOROQUINE
     Indication: MALARIA PROPHYLAXIS

REACTIONS (1)
  - Drug ineffective [Fatal]
